FAERS Safety Report 14282113 (Version 1)
Quarter: 2017Q4

REPORT INFORMATION
  Report Type: Spontaneous
  Country: US (occurrence: US)
  Receive Date: 20171213
  Receipt Date: 20171213
  Transmission Date: 20180321
  Serious: Yes (Hospitalization, Other)
  Sender: FDA-Public Use
  Company Number: US-NAPPMUNDI-USA-2017-0141945

PATIENT

DRUGS (5)
  1. OXYCODONE HYDROCHLORIDE (SIMILAR TO NDA 22-272) [Suspect]
     Active Substance: OXYCODONE HYDROCHLORIDE
     Dosage: 1200 MG, DAILY
     Route: 048
  2. MARIJUANA [Suspect]
     Active Substance: CANNABIS SATIVA SUBSP. INDICA TOP
     Indication: NAUSEA
     Dosage: UNK
     Route: 055
  3. MARIJUANA [Suspect]
     Active Substance: CANNABIS SATIVA SUBSP. INDICA TOP
     Indication: VOMITING
  4. OXYCODONE HYDROCHLORIDE (SIMILAR TO NDA 22-272) [Suspect]
     Active Substance: OXYCODONE HYDROCHLORIDE
     Indication: PRODUCT USED FOR UNKNOWN INDICATION
     Dosage: 40 MG, UNK
     Route: 048
  5. OXYCODONE HYDROCHLORIDE (SIMILAR TO NDA 22-272) [Suspect]
     Active Substance: OXYCODONE HYDROCHLORIDE
     Dosage: OVER 600 MG, DAILY
     Route: 048

REACTIONS (32)
  - Hip surgery [Unknown]
  - Anaesthetic complication [Unknown]
  - Tooth discolouration [Unknown]
  - Weight decreased [Unknown]
  - Hyperhidrosis [Unknown]
  - Feeling cold [Unknown]
  - Nausea [Unknown]
  - Vomiting [Unknown]
  - Loss of consciousness [Unknown]
  - Tooth injury [Unknown]
  - Personality change [Recovered/Resolved]
  - Restless legs syndrome [Unknown]
  - Movement disorder [Unknown]
  - Unevaluable event [Unknown]
  - Drug abuse [Unknown]
  - Liver injury [Unknown]
  - Intentional product use issue [Unknown]
  - Lacrimation increased [Unknown]
  - Muscular weakness [Unknown]
  - Malaise [Unknown]
  - Dental caries [Unknown]
  - Endodontic procedure [Unknown]
  - Sneezing [Unknown]
  - Mental impairment [Unknown]
  - Splenectomy [Unknown]
  - Muscle twitching [Unknown]
  - Rhinorrhoea [Unknown]
  - Chills [Unknown]
  - Drug ineffective [Unknown]
  - Insomnia [Unknown]
  - Drug dose omission [Unknown]
  - Muscle spasms [Unknown]

NARRATIVE: CASE EVENT DATE: 2013
